FAERS Safety Report 4978368-7 (Version None)
Quarter: 2006Q2

REPORT INFORMATION
  Report Type: 
  Country: None (occurrence: None)
  Receive Date: 20060417
  Receipt Date: 20060403
  Transmission Date: 20061013
  Serious: Yes (Life-Threatening, Hospitalization, Other)
  Sender: FDA-Public Use
  Company Number: HQWYE338115MAR06

PATIENT
  Age: 47 Year
  Sex: Male

DRUGS (9)
  1. ANCARON (AMIODARONE, TABLET) [Suspect]
     Indication: VENTRICULAR TACHYCARDIA
     Dosage: 100 MG 1X PER 1 DAY
     Route: 048
     Dates: start: 19980901
  2. ALLOPURINOL [Concomitant]
  3. LASIX [Concomitant]
  4. OMEPRAZOLE [Concomitant]
  5. WARFARIN SODIUM [Concomitant]
  6. FLUITRAN (TRICHLORMETHIAZIDE) [Concomitant]
  7. CARVEDILOL [Concomitant]
  8. ALDACTONE [Concomitant]
  9. BLOPRESS (CANDESARTAN CILEXETIL) [Concomitant]

REACTIONS (3)
  - ATRIAL FIBRILLATION [None]
  - DRUG INEFFECTIVE [None]
  - HYPERTHYROIDISM [None]
